FAERS Safety Report 25789075 (Version 1)
Quarter: 2025Q3

REPORT INFORMATION
  Report Type: Spontaneous
  Country: JP (occurrence: JP)
  Receive Date: 20250911
  Receipt Date: 20250911
  Transmission Date: 20251020
  Serious: Yes (Hospitalization)
  Sender: JOHNSON AND JOHNSON
  Company Number: JP-JNJFOC-20250811617

PATIENT
  Age: 7 Decade
  Sex: Male
  Weight: 95.0 kg

DRUGS (4)
  1. RYBREVANT [Suspect]
     Active Substance: AMIVANTAMAB-VMJW
     Indication: EGFR gene mutation
     Route: 041
     Dates: start: 20250806, end: 20250806
  2. RYBREVANT [Suspect]
     Active Substance: AMIVANTAMAB-VMJW
     Route: 041
     Dates: start: 20250807, end: 20250807
  3. RYBREVANT [Suspect]
     Active Substance: AMIVANTAMAB-VMJW
     Route: 041
     Dates: start: 20250813, end: 20250813
  4. RYBREVANT [Suspect]
     Active Substance: AMIVANTAMAB-VMJW
     Route: 041
     Dates: start: 20250820, end: 20250820

REACTIONS (6)
  - Fracture [Unknown]
  - Infusion related reaction [Recovered/Resolved]
  - Hot flush [Recovered/Resolved]
  - Pruritus [Recovered/Resolved]
  - Rash [Recovered/Resolved]
  - Fall [Unknown]

NARRATIVE: CASE EVENT DATE: 20250101
